FAERS Safety Report 9840680 (Version 1)
Quarter: 2013Q4

REPORT INFORMATION
  Report Type: Spontaneous
  Country: US (occurrence: None)
  Receive Date: 20131211
  Receipt Date: 20131211
  Transmission Date: 20140711
  Serious: Yes (Other)
  Sender: FDA-Public Use
  Company Number: SPV1-2012-01028

PATIENT
  Age: 7 Year
  Sex: Male

DRUGS (1)
  1. VYVANSE (LISDEXAMEFETAMINE DIMESYLATE) [Suspect]
     Route: 048

REACTIONS (3)
  - Agitation [None]
  - Hallucination [None]
  - Insomnia [None]
